FAERS Safety Report 11335496 (Version 1)
Quarter: 2015Q3

REPORT INFORMATION
  Report Type: Report from Study
  Country: US (occurrence: US)
  Receive Date: 20150804
  Receipt Date: 20150804
  Transmission Date: 20151125
  Serious: Yes (Other)
  Sender: FDA-Public Use
  Company Number: PHEH2015US014642

PATIENT
  Age: 8 Year
  Sex: Female
  Weight: 23.6 kg

DRUGS (1)
  1. AFINITOR [Suspect]
     Active Substance: EVEROLIMUS
     Indication: OPTIC GLIOMA
     Dosage: 5 MG, QD
     Route: 048
     Dates: start: 20140101, end: 20150601

REACTIONS (2)
  - Off label use [Unknown]
  - Haemorrhage [Unknown]

NARRATIVE: CASE EVENT DATE: 20150601
